FAERS Safety Report 24589404 (Version 1)
Quarter: 2024Q4

REPORT INFORMATION
  Report Type: Report from Study
  Country: US (occurrence: US)
  Receive Date: 20241107
  Receipt Date: 20241107
  Transmission Date: 20250115
  Serious: Yes (Hospitalization)
  Sender: EISAI
  Company Number: US-Eisai-EC-2024-178256

PATIENT
  Age: 75 Year
  Sex: Male

DRUGS (3)
  1. LENVIMA [Suspect]
     Active Substance: LENVATINIB
     Indication: Thyroid cancer
     Route: 048
     Dates: end: 2024
  2. LENVIMA [Suspect]
     Active Substance: LENVATINIB
     Route: 048
     Dates: start: 2024, end: 202410
  3. LENVIMA [Suspect]
     Active Substance: LENVATINIB
     Dosage: 10 MG QOD AND 20 MG QOD ALTERNATING
     Route: 048
     Dates: start: 202410

REACTIONS (2)
  - Ulcer [Unknown]
  - Abdominal pain upper [Unknown]

NARRATIVE: CASE EVENT DATE: 20241001
